FAERS Safety Report 5726842-8 (Version None)
Quarter: 2008Q2

REPORT INFORMATION
  Report Type: 
  Country: None (occurrence: None)
  Receive Date: 20080502
  Receipt Date: 20080421
  Transmission Date: 20081010
  Serious: Yes (Other)
  Sender: FDA-Public Use
  Company Number: JP-PFIZER INC-2008034688

PATIENT
  Age: 40 Year
  Sex: Female

DRUGS (3)
  1. NORVASC [Suspect]
     Route: 048
  2. ATENOLOL [Suspect]
     Dosage: DAILY DOSE:500MG
     Route: 048
  3. DIOVANE [Suspect]
     Route: 048

REACTIONS (3)
  - BLOOD PRESSURE DECREASED [None]
  - INTENTIONAL OVERDOSE [None]
  - SUICIDE ATTEMPT [None]
